FAERS Safety Report 7575474-8 (Version None)
Quarter: 2011Q2

REPORT INFORMATION
  Report Type: 
  Country: None (occurrence: None)
  Receive Date: 20110627
  Receipt Date: 20110520
  Transmission Date: 20111010
  Serious: Yes (Death, Other)
  Sender: FDA-Public Use
  Company Number: GB-ABBOTT-11P-167-0804693-00

PATIENT
  Age: 60 Year
  Sex: Male

DRUGS (2)
  1. TESTOSTERONE [Suspect]
     Indication: HYPOGONADISM
  2. TESTOSTERONE [Suspect]
     Indication: BLOOD TESTOSTERONE DECREASED
     Dosage: DAILY DOSE:  UNKNOWN
     Route: 062
     Dates: start: 20070101

REACTIONS (5)
  - INTENTIONAL DRUG MISUSE [None]
  - CARDIOMEGALY [None]
  - DRUG INTOLERANCE [None]
  - OEDEMA PERIPHERAL [None]
  - CARDIAC FAILURE [None]
